FAERS Safety Report 5378263-8 (Version None)
Quarter: 2007Q3

REPORT INFORMATION
  Report Type: 
  Country: None (occurrence: None)
  Receive Date: 20070702
  Receipt Date: 20070618
  Transmission Date: 20080115
  Serious: Yes (Other)
  Sender: FDA-Public Use
  Company Number: S07-USA-02674-01

PATIENT
  Sex: Female

DRUGS (2)
  1. LEXAPRO [Suspect]
  2. NICOTROL [Suspect]

REACTIONS (4)
  - DEHYDRATION [None]
  - DRUG INTERACTION [None]
  - NAUSEA [None]
  - RETCHING [None]
